FAERS Safety Report 18107217 (Version 2)
Quarter: 2020Q3

REPORT INFORMATION
  Report Type: Spontaneous
  Country: US (occurrence: US)
  Receive Date: 20200803
  Receipt Date: 20200804
  Transmission Date: 20201103
  Serious: Yes (Other)
  Sender: FDA-Public Use
  Company Number: US-PFIZER INC-2020292706

PATIENT
  Age: 70 Year
  Sex: Male

DRUGS (2)
  1. BRAFTOVI [Suspect]
     Active Substance: ENCORAFENIB
     Indication: THYROID CANCER
     Dosage: 300 MG
  2. MEKTOVI [Suspect]
     Active Substance: BINIMETINIB
     Indication: THYROID CANCER
     Dosage: 45 MG

REACTIONS (4)
  - Off label use [Unknown]
  - Product use in unapproved indication [Unknown]
  - Dysphagia [Unknown]
  - Foreign body in throat [Unknown]
